FAERS Safety Report 8136533-4 (Version None)
Quarter: 2012Q1

REPORT INFORMATION
  Report Type: 
  Country: None (occurrence: None)
  Receive Date: 20120214
  Receipt Date: 20120207
  Transmission Date: 20120608
  Serious: Yes (Other)
  Sender: FDA-Public Use
  Company Number: PHHY2012JP010482

PATIENT
  Age: 84 Year
  Sex: Female

DRUGS (3)
  1. EXELON [Suspect]
     Dosage: 9 MG, DAILY
     Route: 062
  2. EXELON [Suspect]
     Dosage: 13.5 MG, DAILY
     Route: 062
  3. EXELON [Suspect]
     Dosage: 9 MG, DAILY
     Route: 062

REACTIONS (4)
  - DRUG ERUPTION [None]
  - WHITE BLOOD CELL COUNT INCREASED [None]
  - PEMPHIGUS [None]
  - EOSINOPHIL COUNT INCREASED [None]
